FAERS Safety Report 8341206-9 (Version None)
Quarter: 2012Q2

REPORT INFORMATION
  Report Type: 
  Country: None (occurrence: None)
  Receive Date: 20120507
  Receipt Date: 20120425
  Transmission Date: 20120825
  Serious: No
  Sender: FDA-Public Use
  Company Number: JP-UCBSA-056625

PATIENT
  Sex: Female

DRUGS (3)
  1. TEGRETOL [Concomitant]
     Route: 048
  2. PHENYTOIN SODIUM CAP [Concomitant]
  3. KEPPRA [Suspect]
     Route: 048

REACTIONS (1)
  - EOSINOPHIL COUNT INCREASED [None]
